FAERS Safety Report 6449461-7 (Version None)
Quarter: 2009Q4

REPORT INFORMATION
  Report Type: 
  Country: None (occurrence: None)
  Receive Date: 20091120
  Receipt Date: 20091109
  Transmission Date: 20100525
  Serious: Yes (Hospitalization, Other)
  Sender: FDA-Public Use
  Company Number: PHHY2009JP47173

PATIENT
  Age: 17 Year
  Sex: Male

DRUGS (5)
  1. TEGRETOL [Suspect]
  2. RISPERDAL [Concomitant]
  3. PHENOBARBITAL [Concomitant]
  4. TETRAMIDE [Concomitant]
  5. ZOLOFT [Concomitant]

REACTIONS (10)
  - ALTERED STATE OF CONSCIOUSNESS [None]
  - BLOOD CREATINE PHOSPHOKINASE INCREASED [None]
  - FALL [None]
  - MULTIPLE FRACTURES [None]
  - NEUROLEPTIC MALIGNANT SYNDROME [None]
  - PELVIC FRACTURE [None]
  - PNEUMOTHORAX [None]
  - PYREXIA [None]
  - THERAPEUTIC EMBOLISATION [None]
  - TREMOR [None]
